FAERS Safety Report 7846785-3 (Version None)
Quarter: 2011Q4

REPORT INFORMATION
  Report Type: 
  Country: None (occurrence: None)
  Receive Date: 20111025
  Receipt Date: 20111021
  Transmission Date: 20120403
  Serious: Yes (Death, Hospitalization, Other)
  Sender: FDA-Public Use
  Company Number: PHHY2011BR93545

PATIENT
  Sex: Female

DRUGS (3)
  1. EXELON [Suspect]
     Dosage: 9.5 MG, (18MG/10CM2, 1 PATCH A DAY)
     Route: 062
  2. LEVOTHYROXINE SODIUM [Concomitant]
     Indication: HYPOTHYROIDISM
     Dosage: 1 DF, QD
     Route: 048
  3. EXELON [Suspect]
     Indication: DEMENTIA ALZHEIMER'S TYPE
     Dosage: 4.6 MG, (9MG/5CM2, 1 PATCH A DAY)
     Route: 062

REACTIONS (8)
  - RENAL DISORDER [None]
  - DYSPNOEA [None]
  - VOMITING [None]
  - DISTRIBUTIVE SHOCK [None]
  - GASTROINTESTINAL MOTILITY DISORDER [None]
  - UPPER GASTROINTESTINAL HAEMORRHAGE [None]
  - DEMENTIA ALZHEIMER'S TYPE [None]
  - CARDIAC ARREST [None]
